FAERS Safety Report 6757194-2 (Version None)
Quarter: 2010Q2

REPORT INFORMATION
  Report Type: 
  Country: None (occurrence: None)
  Receive Date: 20100607
  Receipt Date: 20100527
  Transmission Date: 20101027
  Serious: Yes (Death, Hospitalization)
  Sender: FDA-Public Use
  Company Number: US-BIOGENIDEC-2010BI002973

PATIENT
  Age: 51 Year
  Sex: Male

DRUGS (3)
  1. AVONEX [Suspect]
     Indication: MULTIPLE SCLEROSIS
     Route: 030
     Dates: start: 20020125, end: 20100401
  2. AVONEX [Suspect]
     Route: 030
     Dates: start: 20020125, end: 20100401
  3. AVONEX [Suspect]
     Route: 030

REACTIONS (5)
  - AMNESIA [None]
  - CHRONIC OBSTRUCTIVE PULMONARY DISEASE [None]
  - GENERAL SYMPTOM [None]
  - LUNG CARCINOMA CELL TYPE UNSPECIFIED STAGE III [None]
  - PNEUMONIA [None]
